FAERS Safety Report 4518892-4 (Version None)
Quarter: 2004Q4

REPORT INFORMATION
  Report Type: 
  Country: None (occurrence: None)
  Receive Date: 20041201
  Receipt Date: 20041115
  Transmission Date: 20050328
  Serious: Yes (Death, Hospitalization, Other)
  Sender: FDA-Public Use
  Company Number: 2004EN000083

PATIENT
  Age: 41 Year
  Sex: Male

DRUGS (6)
  1. ABELCET [Suspect]
     Indication: CRYPTOCOCCOSIS
     Dosage: 450 MG; QD; IV
     Route: 042
  2. AMPHOTERICIN B [Suspect]
     Indication: CRYPTOCOCCOSIS
     Dosage: 85 MG;QD;IV
     Route: 042
  3. ASPIRIN [Concomitant]
  4. FLUCYTOSINE [Concomitant]
  5. DEXAMETHASONE [Concomitant]
  6. FLUCONAZOLE [Concomitant]

REACTIONS (20)
  - AGITATION [None]
  - ANAEMIA [None]
  - BLOOD GASES ABNORMAL [None]
  - CARDIOMEGALY [None]
  - CEREBRAL INFARCTION [None]
  - COMA [None]
  - ELECTROMECHANICAL DISSOCIATION [None]
  - FAT EMBOLISM [None]
  - HEPATOSPLENOMEGALY [None]
  - HYPOXIA [None]
  - METABOLIC ACIDOSIS [None]
  - MULTI-ORGAN FAILURE [None]
  - PETECHIAE [None]
  - PITUITARY INFARCTION [None]
  - PULMONARY OEDEMA [None]
  - RESPIRATORY FAILURE [None]
  - TACHYCARDIA [None]
  - TACHYPNOEA [None]
  - THROMBOCYTOPENIA [None]
  - VENTRICULAR HYPERTROPHY [None]
